FAERS Safety Report 7492601-1 (Version None)
Quarter: 2011Q2

REPORT INFORMATION
  Report Type: 
  Country: None (occurrence: None)
  Receive Date: 20110519
  Receipt Date: 20110516
  Transmission Date: 20111010
  Serious: Yes (Other)
  Sender: FDA-Public Use
  Company Number: HK-PFIZER INC-2011105572

PATIENT
  Age: 32 Year
  Sex: Female

DRUGS (1)
  1. KETAMINE HCL [Suspect]

REACTIONS (2)
  - BILIARY TRACT DISORDER [None]
  - SUBSTANCE USE [None]
